FAERS Safety Report 10265283 (Version 1)
Quarter: 2014Q2

REPORT INFORMATION
  Report Type: Spontaneous
  Country: US (occurrence: US)
  Receive Date: 20140627
  Receipt Date: 20140627
  Transmission Date: 20141212
  Serious: Yes (Hospitalization)
  Sender: FDA-Public Use
  Company Number: US-NOVOPROD-414086

PATIENT
  Sex: Male

DRUGS (4)
  1. VICTOZA [Suspect]
     Indication: DIABETES MELLITUS
     Dosage: 1.8 MG DAILY
     Route: 058
  2. VICTOZA [Suspect]
     Dosage: 1.2 MG DAILY
     Route: 058
  3. METFORMIN [Suspect]
     Indication: DIABETES MELLITUS
     Dosage: UNKNOWN
     Route: 048
  4. INVOKANA [Suspect]
     Indication: DIABETES MELLITUS
     Dosage: 300 MG DAILY
     Route: 048

REACTIONS (2)
  - Gastrointestinal oedema [Unknown]
  - Abdominal pain [Unknown]
